FAERS Safety Report 7392893-3 (Version None)
Quarter: 2011Q1

REPORT INFORMATION
  Report Type: 
  Country: None (occurrence: None)
  Receive Date: 20110330
  Receipt Date: 20110330
  Transmission Date: 20110831
  Serious: Yes (Hospitalization, Other)
  Sender: FDA-Public Use
  Company Number: None

PATIENT
  Age: 57 Year
  Sex: Female
  Weight: 54.4316 kg

DRUGS (2)
  1. NEXIUM [Suspect]
     Indication: GASTROOESOPHAGEAL REFLUX DISEASE
     Dosage: 1 QD AT BEDTIME PO
     Route: 048
     Dates: start: 20100428, end: 20110302
  2. PRILOSEC [Suspect]
     Indication: GASTROOESOPHAGEAL REFLUX DISEASE
     Dosage: 1 QD AT BEDTIME PO
     Route: 048
     Dates: start: 20100801, end: 20100831

REACTIONS (1)
  - TRANSIENT ISCHAEMIC ATTACK [None]
